FAERS Safety Report 7335590-2 (Version None)
Quarter: 2011Q1

REPORT INFORMATION
  Report Type: 
  Country: None (occurrence: None)
  Receive Date: 20110301
  Receipt Date: 20110301
  Transmission Date: 20110831
  Serious: Yes (Other)
  Sender: FDA-Public Use
  Company Number: None

PATIENT
  Age: 46 Year
  Sex: Male

DRUGS (1)
  1. SAPHRIS [Suspect]
     Indication: AFFECTIVE DISORDER
     Dosage: 10 MG DAILY SL
     Route: 060
     Dates: start: 20110220, end: 20110220

REACTIONS (2)
  - PHARYNGEAL OEDEMA [None]
  - THROAT TIGHTNESS [None]
